FAERS Safety Report 9120940 (Version 1)
Quarter: 2013Q1

REPORT INFORMATION
  Report Type: Spontaneous
  Country: US (occurrence: US)
  Receive Date: 20130226
  Receipt Date: 20130226
  Transmission Date: 20140127
  Serious: Yes (Hospitalization, Other)
  Sender: FDA-Public Use
  Company Number: US-AMGEN-USASP2013012202

PATIENT
  Age: 37 Year
  Sex: Male

DRUGS (2)
  1. ENBREL [Suspect]
     Indication: PSORIASIS
     Dosage: UNK, THREE DOSES
  2. ENBREL [Suspect]
     Indication: PSORIATIC ARTHROPATHY

REACTIONS (5)
  - Alopecia [Unknown]
  - Skin hyperpigmentation [Unknown]
  - Extrapulmonary tuberculosis [Recovering/Resolving]
  - Bovine tuberculosis [Recovering/Resolving]
  - Skin reaction [Unknown]
